FAERS Safety Report 6032644-8 (Version None)
Quarter: 2008Q4

REPORT INFORMATION
  Report Type: 
  Country: None (occurrence: None)
  Receive Date: 20081224
  Receipt Date: 20081020
  Transmission Date: 20090506
  Serious: No
  Sender: FDA-Public Use
  Company Number: 2008PV036951

PATIENT
  Age: 61 Year
  Sex: Female
  Weight: 72.5755 kg

DRUGS (6)
  1. SYMLIN [Suspect]
     Indication: TYPE 2 DIABETES MELLITUS
     Dosage: 120 MCG; ;SC; 90 MCG; ;SC; 60 MCG; ;SC; 30 MCG; ; SC
     Route: 058
     Dates: start: 20080101, end: 20080101
  2. SYMLIN [Suspect]
     Indication: TYPE 2 DIABETES MELLITUS
     Dosage: 120 MCG; ;SC; 90 MCG; ;SC; 60 MCG; ;SC; 30 MCG; ; SC
     Route: 058
     Dates: start: 20080101, end: 20080101
  3. SYMLIN [Suspect]
     Indication: TYPE 2 DIABETES MELLITUS
     Dosage: 120 MCG; ;SC; 90 MCG; ;SC; 60 MCG; ;SC; 30 MCG; ; SC
     Route: 058
     Dates: start: 20080914, end: 20080101
  4. SYMLIN [Suspect]
     Indication: TYPE 2 DIABETES MELLITUS
     Dosage: 120 MCG; ;SC; 90 MCG; ;SC; 60 MCG; ;SC; 30 MCG; ; SC
     Route: 058
     Dates: start: 20080101
  5. LANTUS [Concomitant]
  6. NOVOLOG [Concomitant]

REACTIONS (4)
  - CARPAL TUNNEL SYNDROME [None]
  - HYPOAESTHESIA [None]
  - INJECTION SITE RASH [None]
  - VISION BLURRED [None]
